FAERS Safety Report 7686513-8 (Version None)
Quarter: 2011Q3

REPORT INFORMATION
  Report Type: 
  Country: None (occurrence: None)
  Receive Date: 20110816
  Receipt Date: 20110801
  Transmission Date: 20111222
  Serious: Yes (Other)
  Sender: FDA-Public Use
  Company Number: US-JUTA GMBH-2011-12501

PATIENT
  Age: 84 Year
  Sex: Female

DRUGS (1)
  1. ALENDRONATE SODIUM [Suspect]
     Indication: OSTEOPOROSIS
     Dosage: 70 MG, 1/WEEK

REACTIONS (3)
  - OESOPHAGEAL DILATATION [None]
  - OESOPHAGITIS [None]
  - OESOPHAGEAL STENOSIS [None]
